FAERS Safety Report 18881031 (Version 1)
Quarter: 2021Q1

REPORT INFORMATION
  Report Type: Spontaneous
  Country: CA (occurrence: CA)
  Receive Date: 20210212
  Receipt Date: 20210212
  Transmission Date: 20210420
  Serious: Yes (Death, Hospitalization)
  Sender: FDA-Public Use
  Company Number: CA-JNJFOC-20210207061

PATIENT

DRUGS (2)
  1. PARACETAMOL [Suspect]
     Active Substance: ACETAMINOPHEN
     Indication: PRODUCT USED FOR UNKNOWN INDICATION
     Route: 048
  2. ALCOHOL. [Suspect]
     Active Substance: ALCOHOL
     Indication: PRODUCT USED FOR UNKNOWN INDICATION
     Route: 065

REACTIONS (11)
  - Overdose [Fatal]
  - Coagulopathy [Fatal]
  - Brain oedema [Fatal]
  - Hepatic failure [Fatal]
  - Hepatotoxicity [Fatal]
  - Blood lactate dehydrogenase increased [Fatal]
  - Encephalopathy [Fatal]
  - Blood creatinine increased [Fatal]
  - Acidosis [Fatal]
  - Product administration error [Fatal]
  - Hyperphosphataemia [Fatal]
